FAERS Safety Report 8842478 (Version 7)
Quarter: 2013Q1

REPORT INFORMATION
  Report Type: Spontaneous
  Country: US (occurrence: US)
  Receive Date: 20121016
  Receipt Date: 20130211
  Transmission Date: 20140127
  Serious: Yes (Hospitalization, Disabling, Other)
  Sender: FDA-Public Use
  Company Number: US-009507513-1204USA02195

PATIENT
  Sex: Female

DRUGS (5)
  1. FOSAMAX [Suspect]
     Indication: OSTEOPOROSIS
     Dosage: 70 MG, QW
     Route: 048
     Dates: start: 1996, end: 20080209
  2. SYNTHROID [Concomitant]
     Indication: HYPOTHYROIDISM
     Dosage: UNK
     Dates: start: 1990
  3. BONIVA [Suspect]
     Indication: OSTEOPOROSIS
     Dosage: 150 MG, UNK
     Route: 048
     Dates: start: 2007
  4. FOSAMAX [Suspect]
     Indication: OSTEOPOROSIS
     Dosage: 70 MG, QW
     Route: 048
     Dates: start: 20080309, end: 20080330
  5. ALENDRONATE SODIUM [Suspect]
     Indication: OSTEOPOROSIS
     Dosage: 70 MG, QW
     Route: 048
     Dates: start: 20080629, end: 20100412

REACTIONS (34)
  - Fall [Unknown]
  - Lymphoma [Unknown]
  - Open reduction of fracture [Unknown]
  - Internal fixation of fracture [Unknown]
  - Femur fracture [Not Recovered/Not Resolved]
  - Femur fracture [Unknown]
  - Endodontic procedure [Unknown]
  - Medical device removal [Unknown]
  - Medical device removal [Unknown]
  - Tooth extraction [Unknown]
  - Toothache [Unknown]
  - Surgical procedure repeated [Unknown]
  - Impaired healing [Not Recovered/Not Resolved]
  - Hypergammaglobulinaemia benign monoclonal [Unknown]
  - Medical device complication [Unknown]
  - Rheumatic disorder [Unknown]
  - Fracture nonunion [Not Recovered/Not Resolved]
  - Arthralgia [Unknown]
  - Drug hypersensitivity [Unknown]
  - Diverticulum [Not Recovered/Not Resolved]
  - Hyperthyroidism [Not Recovered/Not Resolved]
  - Eczema [Not Recovered/Not Resolved]
  - Osteoarthritis [Not Recovered/Not Resolved]
  - Gastrointestinal disorder [Unknown]
  - Rib fracture [Recovering/Resolving]
  - Basedow^s disease [Unknown]
  - Psoriasis [Not Recovered/Not Resolved]
  - Lymphoproliferative disorder [Unknown]
  - Hypergammaglobulinaemia benign monoclonal [Unknown]
  - Arthritis [Unknown]
  - CREST syndrome [Unknown]
  - Postmenopause [Unknown]
  - Osteopenia [Unknown]
  - Medical device removal [Unknown]
